FAERS Safety Report 7585746-9 (Version None)
Quarter: 2011Q3

REPORT INFORMATION
  Report Type: 
  Country: None (occurrence: None)
  Receive Date: 20110701
  Receipt Date: 20110622
  Transmission Date: 20111222
  Serious: Yes (Other)
  Sender: FDA-Public Use
  Company Number: DE-TEVA-287671GER

PATIENT
  Age: 89 Year
  Sex: Female

DRUGS (1)
  1. ALENDRONATE SODIUM [Suspect]
     Route: 048
     Dates: start: 20031101, end: 20051201

REACTIONS (3)
  - DENTAL IMPLANTATION [None]
  - OSTEOMYELITIS [None]
  - FISTULA [None]
